FAERS Safety Report 9681498 (Version 1)
Quarter: 2013Q4

REPORT INFORMATION
  Report Type: Spontaneous
  Country: NL (occurrence: NL)
  Receive Date: 20131111
  Receipt Date: 20131111
  Transmission Date: 20140711
  Serious: Yes (Hospitalization)
  Sender: FDA-Public Use
  Company Number: NL-PFIZER INC-2013317052

PATIENT
  Age: 57 Year
  Sex: Female
  Weight: 63 kg

DRUGS (1)
  1. DIFLUCAN [Suspect]
     Indication: SKIN CANDIDA
     Dosage: 200 MG, 1X/DAY
     Dates: start: 20131009

REACTIONS (5)
  - VIIth nerve paralysis [Recovered/Resolved]
  - Blister [Recovered/Resolved]
  - Rash pruritic [Recovered/Resolved]
  - Eye swelling [Recovered/Resolved]
  - Dyspnoea [Recovered/Resolved]
